FAERS Safety Report 7092830-5 (Version None)
Quarter: 2010Q4

REPORT INFORMATION
  Report Type: 
  Country: None (occurrence: None)
  Receive Date: 20101110
  Receipt Date: 20101102
  Transmission Date: 20110411
  Serious: No
  Sender: FDA-Public Use
  Company Number: US-PFIZER INC-2010139875

PATIENT
  Sex: Female

DRUGS (3)
  1. LIPITOR [Suspect]
     Indication: BLOOD CHOLESTEROL ABNORMAL
     Dosage: UNK
     Route: 048
     Dates: start: 20050101
  2. IBANDRONATE SODIUM [Concomitant]
     Indication: BONE DENSITOMETRY
     Dosage: UNK
     Route: 048
     Dates: start: 20050101
  3. ACETYLSALICYLIC ACID [Concomitant]
     Dosage: UNK
     Route: 048
     Dates: start: 20090101

REACTIONS (1)
  - NERVE INJURY [None]
